FAERS Safety Report 8387488-9 (Version None)
Quarter: 2012Q2

REPORT INFORMATION
  Report Type: 
  Country: None (occurrence: None)
  Receive Date: 20120525
  Receipt Date: 20120521
  Transmission Date: 20120825
  Serious: Yes (Other)
  Sender: FDA-Public Use
  Company Number: PHHY2012LU044193

PATIENT
  Age: 73 Year
  Sex: Male

DRUGS (5)
  1. BISOPROLOL FUMARATE [Concomitant]
  2. LASIX [Concomitant]
  3. AFINITOR [Suspect]
     Dosage: 10 MG, DAILY
     Route: 048
     Dates: start: 20101022, end: 20101024
  4. AFINITOR [Suspect]
     Indication: RENAL CELL CARCINOMA
     Dosage: 10 MG, DAILY
     Route: 048
     Dates: start: 20100801, end: 20101015
  5. ZOCOR [Concomitant]

REACTIONS (3)
  - PRURITUS [None]
  - URTICARIA [None]
  - RASH GENERALISED [None]
